FAERS Safety Report 10203490 (Version 1)
Quarter: 2014Q2

REPORT INFORMATION
  Report Type: Report from Study
  Country: TW (occurrence: TW)
  Receive Date: 20140529
  Receipt Date: 20140529
  Transmission Date: 20141212
  Serious: Yes (Hospitalization)
  Sender: FDA-Public Use
  Company Number: TW-SA-2014SA068152

PATIENT
  Age: 12 Month
  Sex: Male

DRUGS (3)
  1. MYOZYME [Suspect]
     Indication: GLYCOGEN STORAGE DISEASE TYPE II
     Route: 042
     Dates: start: 200711
  2. SOLU-MEDROL [Concomitant]
     Indication: HYPERSENSITIVITY
  3. VENAN CALCIUM B6 [Concomitant]
     Indication: HYPERSENSITIVITY

REACTIONS (18)
  - Respiratory syncytial virus bronchiolitis [Recovered/Resolved]
  - Bronchopneumonia [Recovered/Resolved]
  - Pneumonia [Recovered/Resolved]
  - Pneumonia [Recovered/Resolved]
  - Pneumonia [Recovered/Resolved]
  - Pneumonia [Recovered/Resolved]
  - Pneumonia [Recovered/Resolved]
  - Pneumonia [Recovered/Resolved]
  - Pneumonia [Recovered/Resolved]
  - Pneumonia [Recovered/Resolved]
  - Pneumonia [Recovered/Resolved]
  - Femur fracture [Recovered/Resolved]
  - Pneumonia [Recovered/Resolved]
  - Pneumonia [Recovered/Resolved]
  - Pneumonia [Recovered/Resolved]
  - Upper gastrointestinal haemorrhage [Recovered/Resolved]
  - Central venous catheterisation [Recovered/Resolved]
  - Pneumonia [Recovered/Resolved]
